FAERS Safety Report 20888608 (Version 2)
Quarter: 2022Q2

REPORT INFORMATION
  Report Type: Spontaneous
  Country: DK (occurrence: DK)
  Receive Date: 20220529
  Receipt Date: 20220616
  Transmission Date: 20220721
  Serious: Yes (Hospitalization, Other)
  Sender: FDA-Public Use
  Company Number: DK-SANOFI-01044611

PATIENT
  Age: 57 Year
  Sex: Male

DRUGS (6)
  1. DUPIXENT [Suspect]
     Active Substance: DUPILUMAB
     Indication: Asthma
     Dosage: 600 MG, 1X
     Dates: start: 20210831, end: 20210831
  2. DUPIXENT [Suspect]
     Active Substance: DUPILUMAB
     Dosage: 300 MG, QOW
     Dates: end: 20220401
  3. INNOVAIR [Concomitant]
     Active Substance: BECLOMETHASONE DIPROPIONATE\FORMOTEROL
     Indication: Asthma
     Dosage: UNK, TID, 2 PUFFS X 3 TIMES DAILY ON SPACER
     Dates: start: 20220329
  4. ALBUTEROL SULFATE [Concomitant]
     Active Substance: ALBUTEROL SULFATE
     Indication: Asthma
     Dosage: UNK, PRN, 1 PUFF WHEN NEEDED
     Dates: start: 20220406
  5. UNIKALK FORTE [Concomitant]
     Dosage: 1 DF, BID
     Dates: start: 20220420
  6. PANTOPRAZOLE [Concomitant]
     Active Substance: PANTOPRAZOLE
     Indication: Hyperchlorhydria
     Dosage: 40 MG, QD
     Dates: start: 20220420

REACTIONS (3)
  - Eosinophilic pneumonia [Recovered/Resolved]
  - Eosinophil count increased [Recovered/Resolved]
  - Lung infiltration [Unknown]

NARRATIVE: CASE EVENT DATE: 20220329
